FAERS Safety Report 18621061 (Version 1)
Quarter: 2020Q4

REPORT INFORMATION
  Report Type: Spontaneous
  Country: FR (occurrence: FR)
  Receive Date: 20201215
  Receipt Date: 20201215
  Transmission Date: 20210114
  Serious: Yes (Hospitalization, Other)
  Sender: FDA-Public Use
  Company Number: FR-009507513-2012FRA006804

PATIENT
  Age: 68 Year
  Sex: Male

DRUGS (3)
  1. RIBAVIRIN. [Suspect]
     Active Substance: RIBAVIRIN
     Dosage: UNK
     Route: 048
     Dates: start: 20140502, end: 20141105
  2. SOFOSBUVIR [Suspect]
     Active Substance: SOFOSBUVIR
     Dosage: UNK
     Dates: start: 20140522, end: 20141105
  3. DACLATASVIR. [Suspect]
     Active Substance: DACLATASVIR
     Dosage: UNK
     Dates: start: 20140522, end: 20141105

REACTIONS (3)
  - Ascites [Unknown]
  - Oedema due to hepatic disease [Unknown]
  - Hepatic cirrhosis [Unknown]

NARRATIVE: CASE EVENT DATE: 20190912
